FAERS Safety Report 7150368-0 (Version None)
Quarter: 2010Q4

REPORT INFORMATION
  Report Type: 
  Country: None (occurrence: None)
  Receive Date: 20101210
  Receipt Date: 20101130
  Transmission Date: 20110411
  Serious: Yes (Other)
  Sender: FDA-Public Use
  Company Number: CA-JNJFOC-20100900713

PATIENT
  Sex: Male
  Weight: 86.64 kg

DRUGS (8)
  1. STELARA [Suspect]
     Indication: PSORIASIS
     Route: 058
     Dates: start: 20090604
  2. MS CONTIN [Concomitant]
  3. LYRICA [Concomitant]
  4. CESAMET [Concomitant]
  5. HYDROMORPHONE HCL [Concomitant]
     Dosage: 6 MG TWICE DAILY AND 24 MG AT NIGHT
  6. DIOVAN [Concomitant]
  7. FOLIC ACID [Concomitant]
  8. NEXIUM [Concomitant]

REACTIONS (4)
  - DIARRHOEA [None]
  - DYSPNOEA [None]
  - HAEMATOCHEZIA [None]
  - SWELLING [None]
